FAERS Safety Report 5897876-8 (Version None)
Quarter: 2008Q3

REPORT INFORMATION
  Report Type: 
  Country: None (occurrence: None)
  Receive Date: 20080925
  Receipt Date: 20080915
  Transmission Date: 20090109
  Serious: Yes (Other)
  Sender: FDA-Public Use
  Company Number: JP-WYE-H05991208

PATIENT
  Age: 52 Year
  Sex: Male

DRUGS (1)
  1. GEMTUZUMAB OZOGAMICIN [Suspect]
     Indication: ACUTE PROMYELOCYTIC LEUKAEMIA
     Dosage: 9 MG/M^2 ADMINISTERED AS CONSOLIDATION THERAPY ON DAYS 218 AND 232
     Route: 065

REACTIONS (1)
  - CYSTITIS HAEMORRHAGIC [None]
